FAERS Safety Report 8534487-X (Version None)
Quarter: 2012Q3

REPORT INFORMATION
  Report Type: 
  Country: None (occurrence: None)
  Receive Date: 20120724
  Receipt Date: 20120716
  Transmission Date: 20120928
  Serious: Yes (Life-Threatening, Hospitalization)
  Sender: FDA-Public Use
  Company Number: FR-ROCHE-1061910

PATIENT
  Age: 35 Year
  Sex: Male

DRUGS (6)
  1. PEGASYS [Suspect]
     Indication: HEPATITIS C
     Route: 058
     Dates: start: 20110428, end: 20120322
  2. ACYCLOVIR [Concomitant]
     Route: 048
     Dates: start: 20110528
  3. TG4040 (MVA-HCV) [Suspect]
     Indication: HEPATITIS C
     Dosage: 10E7 PFU ONCE WEEKLY FOR 6 WEEKS PLUS 7 TG4040 INJECTIONS EVERY 4 WEEKS
     Route: 058
     Dates: start: 20110203, end: 20110922
  4. METHADONE HCL [Concomitant]
     Route: 048
     Dates: start: 19940101
  5. ACETAMINOPHEN [Concomitant]
     Indication: HEADACHE
     Route: 048
     Dates: start: 20110428
  6. COPEGUS [Suspect]
     Indication: HEPATITIS C
     Route: 048
     Dates: start: 20110428, end: 20120329

REACTIONS (1)
  - AUTOIMMUNE THROMBOCYTOPENIA [None]
